FAERS Safety Report 4742648-0 (Version None)
Quarter: 2005Q3

REPORT INFORMATION
  Report Type: 
  Country: None (occurrence: None)
  Receive Date: 20050808
  Receipt Date: 20050726
  Transmission Date: 20060218
  Serious: Yes (Death, Hospitalization)
  Sender: FDA-Public Use
  Company Number: US-2005-011296

PATIENT
  Age: 71 Year
  Sex: Female

DRUGS (10)
  1. BETASERON [Suspect]
     Indication: RELAPSING-REMITTING MULTIPLE SCLEROSIS
     Dosage: 8 MIU, EVERY 2D,SUBCUTANEOUS
     Route: 058
     Dates: start: 19950501, end: 20050614
  2. LASIX [Concomitant]
  3. DEPAKOTE [Concomitant]
  4. ASPIRIN [Concomitant]
  5. DIOVAN ^CIBA-CEIGY^ (VALSARTAN) [Concomitant]
  6. COREG [Concomitant]
  7. AMIODARONE HCL [Concomitant]
  8. RYTHMOL [Concomitant]
  9. PHENYTOIN [Concomitant]
  10. POTASSIUM CHLORIDE [Concomitant]

REACTIONS (5)
  - CARDIAC FAILURE CONGESTIVE [None]
  - CONDITION AGGRAVATED [None]
  - DEMENTIA [None]
  - HYPERTENSION [None]
  - HYPERTROPHIC CARDIOMYOPATHY [None]
